FAERS Safety Report 8771808 (Version 1)
Quarter: 2012Q4

REPORT INFORMATION
  Report Type: 
  Country: US (occurrence: US)
  Receive Date: 20120905
  Receipt Date: 20120905
  Transmission Date: 20130627
  Serious: No
  Sender: FDA-Public Use
  Company Number: US-B.I. PHARMACEUTICALS,INC./RIDGEFIELD-2012-BP-21251BP

PATIENT
  Age: 86 Year
  Sex: Female

DRUGS (3)
  1. SPIRIVA [Suspect]
     Indication: EMPHYSEMA
     Dosage: 18 mcg
     Route: 055
     Dates: start: 20120531
  2. SEREVENT [Concomitant]
     Indication: LUNG DISORDER
     Route: 055
  3. BUDESONIDE [Concomitant]
     Indication: LUNG DISORDER
     Route: 055

REACTIONS (4)
  - Dyspnoea [Not Recovered/Not Resolved]
  - Drug ineffective [Not Recovered/Not Resolved]
  - Fatigue [Unknown]
  - Product quality issue [Unknown]
